FAERS Safety Report 9344195 (Version 3)
Quarter: 2013Q3

REPORT INFORMATION
  Report Type: Report from Study
  Country: FR (occurrence: FR)
  Receive Date: 20130612
  Receipt Date: 20130704
  Transmission Date: 20140515
  Serious: Yes (Hospitalization)
  Sender: FDA-Public Use
  Company Number: FR-AMGEN-FRACT2013041114

PATIENT
  Age: 63 Year
  Sex: Male
  Weight: 79 kg

DRUGS (6)
  1. PANITUMUMAB [Suspect]
     Indication: TRANSITIONAL CELL CARCINOMA
     Dosage: 440 MG, UNK
     Route: 042
     Dates: start: 20130302
  2. METHOTREXATE [Concomitant]
     Indication: TRANSITIONAL CELL CARCINOMA
     Dosage: 57 MG, UNK
     Route: 042
     Dates: start: 20130301
  3. VINBLASTINE [Concomitant]
     Indication: TRANSITIONAL CELL CARCINOMA
     Dosage: 4.8 MG, UNK
     Route: 042
     Dates: start: 20130302
  4. DOXORUBICINE [Concomitant]
     Indication: TRANSITIONAL CELL CARCINOMA
     Dosage: 48 MG, UNK
     Route: 042
     Dates: start: 20130302
  5. CISPLATINE [Concomitant]
     Indication: TRANSITIONAL CELL CARCINOMA
     Dosage: 110 MG, UNK
     Route: 042
     Dates: start: 20130302
  6. LERCAN [Concomitant]
     Indication: HYPERTENSION
     Dosage: UNK
     Route: 048

REACTIONS (1)
  - General physical health deterioration [Recovered/Resolved]
